FAERS Safety Report 13433204 (Version 6)
Quarter: 2018Q4

REPORT INFORMATION
  Report Type: Report from Study
  Country: US (occurrence: US)
  Receive Date: 20170412
  Receipt Date: 20181008
  Transmission Date: 20190204
  Serious: Yes (Hospitalization)
  Sender: FDA-Public Use
  Company Number: US-ACTELION-A-NJ2015-126263

PATIENT
  Age: 37 Year
  Sex: Female

DRUGS (4)
  1. OPSUMIT [Suspect]
     Active Substance: MACITENTAN
     Indication: PULMONARY ARTERIAL HYPERTENSION
     Dosage: 10 MG, QD
     Route: 048
     Dates: start: 20150827, end: 20170802
  2. FUROSEMIDE. [Concomitant]
     Active Substance: FUROSEMIDE
     Dosage: 40 MG, QD
     Route: 048
  3. ADEMPAS [Concomitant]
     Active Substance: RIOCIGUAT
     Dosage: 2.5 MG, TID
     Dates: start: 2016
  4. OPSUMIT [Suspect]
     Active Substance: MACITENTAN
     Dosage: UNK
     Route: 048

REACTIONS (23)
  - Shrinking lung syndrome [Unknown]
  - Road traffic accident [Recovered/Resolved]
  - Hypotension [Unknown]
  - Condition aggravated [Unknown]
  - Product dose omission [Unknown]
  - Influenza like illness [Not Recovered/Not Resolved]
  - Tracheostomy [Recovering/Resolving]
  - Malaise [Not Recovered/Not Resolved]
  - Oxygen saturation decreased [Recovering/Resolving]
  - Dyspnoea [Unknown]
  - Dysphagia [Recovered/Resolved]
  - Pulmonary fibrosis [Unknown]
  - Acute respiratory failure [Not Recovered/Not Resolved]
  - Cardiac disorder [Unknown]
  - Panic reaction [Unknown]
  - Gastrointestinal tube insertion [Unknown]
  - Systemic lupus erythematosus [Not Recovered/Not Resolved]
  - Urinary tract infection [Unknown]
  - Complication associated with device [Unknown]
  - Back pain [Unknown]
  - Dizziness [Not Recovered/Not Resolved]
  - Heart rate increased [Unknown]
  - Pulmonary arterial hypertension [Unknown]

NARRATIVE: CASE EVENT DATE: 20151022
